FAERS Safety Report 7098622-5 (Version None)
Quarter: 2010Q4

REPORT INFORMATION
  Report Type: 
  Country: None (occurrence: None)
  Receive Date: 20101112
  Receipt Date: 20101104
  Transmission Date: 20110411
  Serious: Yes (Hospitalization)
  Sender: FDA-Public Use
  Company Number: FR-PFIZER INC-2010137804

PATIENT
  Age: 63 Year
  Sex: Male

DRUGS (6)
  1. TAHOR [Suspect]
     Dosage: 10 MG, 1X/DAY
     Route: 048
     Dates: start: 20100715, end: 20100924
  2. COVERSYL [Suspect]
     Dosage: 5 MG, 1X/DAY
     Route: 048
     Dates: start: 20100831, end: 20100924
  3. PLAVIX [Suspect]
     Dosage: 75 MG, 1X/DAY
     Route: 048
     Dates: start: 20100716
  4. LAROXYL [Suspect]
     Dosage: 25 MG, 1X/DAY
     Route: 048
     Dates: start: 20100715
  5. ESCITALOPRAM [Suspect]
     Dosage: 15 MG, 1X/DAY
     Route: 048
     Dates: start: 20100716, end: 20100924
  6. LIORESAL [Suspect]
     Dosage: 2 DF, 3X/DAY
     Dates: start: 20100715

REACTIONS (5)
  - BILIARY CYST [None]
  - CHOLESTASIS [None]
  - CYTOLYTIC HEPATITIS [None]
  - FAECALOMA [None]
  - PANCREATITIS ACUTE [None]
